FAERS Safety Report 18425463 (Version 1)
Quarter: 2020Q4

REPORT INFORMATION
  Report Type: Spontaneous
  Country: US (occurrence: US)
  Receive Date: 20201024
  Receipt Date: 20201024
  Transmission Date: 20210114
  Serious: Yes (Other)
  Sender: FDA-Public Use
  Company Number: None

PATIENT
  Age: 39 Year
  Sex: Female
  Weight: 135 kg

DRUGS (17)
  1. TRAMADOL. [Concomitant]
     Active Substance: TRAMADOL
  2. VITAMIN D [Concomitant]
     Active Substance: VITAMIN D NOS
  3. GLUCOSAMINE CHONDROITIN [Concomitant]
     Active Substance: CHONDROITIN SULFATE (BOVINE)\GLUCOSAMINE HYDROCHLORIDE
  4. SILVER SULFADIAZINE. [Concomitant]
     Active Substance: SILVER SULFADIAZINE
  5. TIZANIDINE. [Concomitant]
     Active Substance: TIZANIDINE
  6. ALLERGY RELIEF [Concomitant]
  7. VALSARTAN. [Concomitant]
     Active Substance: VALSARTAN
  8. ARIPIRAZOLE [Concomitant]
     Active Substance: ARIPIPRAZOLE
  9. AZELASTINE. [Concomitant]
     Active Substance: AZELASTINE HYDROCHLORIDE
  10. ATORVASTATIN [Concomitant]
     Active Substance: ATORVASTATIN
  11. TOPIRAMATE. [Concomitant]
     Active Substance: TOPIRAMATE
  12. PROBIOTICS [Concomitant]
     Active Substance: PROBIOTICS NOS
  13. ICY HOT [Suspect]
     Active Substance: MENTHOL\METHYL SALICYLATE
     Indication: BACK PAIN
     Dosage: ?          QUANTITY:1 THIN LAYER;?
     Route: 061
     Dates: start: 20201009, end: 20201010
  14. OZEMPIC [Concomitant]
     Active Substance: SEMAGLUTIDE
  15. GABAPENTIN. [Concomitant]
     Active Substance: GABAPENTIN
  16. HYDROCODONE [Concomitant]
     Active Substance: HYDROCODONE
  17. FLUTICASONE. [Concomitant]
     Active Substance: FLUTICASONE

REACTIONS (1)
  - Application site burn [None]

NARRATIVE: CASE EVENT DATE: 20201009
